FAERS Safety Report 6516955-5 (Version None)
Quarter: 2009Q4

REPORT INFORMATION
  Report Type: 
  Country: None (occurrence: None)
  Receive Date: 20091223
  Receipt Date: 20091216
  Transmission Date: 20100525
  Serious: Yes (Hospitalization)
  Sender: FDA-Public Use
  Company Number: JP-ABBOTT-09P-087-0615468-00

PATIENT
  Sex: Male

DRUGS (4)
  1. LEUPRORELIN DEPOT [Suspect]
     Indication: BULBOSPINAL MUSCULAR ATROPHY CONGENITAL
     Route: 058
     Dates: start: 20080312, end: 20091014
  2. AMLODIN [Concomitant]
     Indication: HYPERTENSION
     Route: 048
     Dates: start: 20060901
  3. NU-LOTAN [Concomitant]
     Indication: HYPERTENSION
     Route: 048
     Dates: start: 20060901
  4. LIPITOR [Concomitant]
     Indication: HYPERLIPIDAEMIA
     Route: 048
     Dates: start: 20061214

REACTIONS (1)
  - COLON ADENOMA [None]
